FAERS Safety Report 5099695-1 (Version None)
Quarter: 2006Q3

REPORT INFORMATION
  Report Type: 
  Country: None (occurrence: None)
  Receive Date: 20060908
  Receipt Date: 20060830
  Transmission Date: 20061208
  Serious: Yes (Hospitalization)
  Sender: FDA-Public Use
  Company Number: DE-ROCHE-461407

PATIENT
  Age: 36 Year
  Sex: Female

DRUGS (8)
  1. VALGANCICLOVIR HCL [Suspect]
     Route: 048
     Dates: start: 20060824, end: 20060830
  2. PREDNIZON [Concomitant]
  3. SANDIMMUNE [Concomitant]
     Dosage: DOSING REGIMEN REPORTED AS 250 2X1
  4. CELLCEPT [Concomitant]
     Dosage: DOSING REGIMEN REPORTED AS 500 2X2
  5. METOPROLOL TARTRATE [Concomitant]
  6. DELIX [Concomitant]
  7. PANTOZOL [Concomitant]
  8. AMPHO MORONAL [Concomitant]

REACTIONS (1)
  - PNEUMONIA [None]
